FAERS Safety Report 16385208 (Version 3)
Quarter: 2019Q2

REPORT INFORMATION
  Report Type: Spontaneous
  Country: FR (occurrence: FR)
  Receive Date: 20190603
  Receipt Date: 20190612
  Transmission Date: 20190711
  Serious: Yes (Hospitalization)
  Sender: FDA-Public Use
  Company Number: FR-OTSUKA-2019_021333

PATIENT
  Age: 37 Year
  Sex: Male

DRUGS (2)
  1. ABILIFY MAINTENA [Suspect]
     Active Substance: ARIPIPRAZOLE
     Indication: PRODUCT USED FOR UNKNOWN INDICATION
     Dosage: 400 MG, UNK
     Route: 065
     Dates: start: 201905, end: 201905
  2. ABILIFY [Suspect]
     Active Substance: ARIPIPRAZOLE
     Indication: SUPPLEMENTATION THERAPY
     Dosage: 10 MG, BID
     Route: 048

REACTIONS (4)
  - Intentional product misuse [Unknown]
  - Inappropriate schedule of product administration [Unknown]
  - Product dose omission [Unknown]
  - Symptom recurrence [Recovering/Resolving]

NARRATIVE: CASE EVENT DATE: 201905
